FAERS Safety Report 16822986 (Version 1)
Quarter: 2019Q3

REPORT INFORMATION
  Report Type: Spontaneous
  Country: US (occurrence: US)
  Receive Date: 20190918
  Receipt Date: 20190918
  Transmission Date: 20191005
  Serious: No
  Sender: FDA-Public Use
  Company Number: US-SUNOVION-2019SUN003808

PATIENT
  Age: 64 Year
  Sex: Female

DRUGS (1)
  1. BROVANA [Suspect]
     Active Substance: ARFORMOTEROL TARTRATE
     Dosage: UNK UNK, BID
     Route: 055

REACTIONS (4)
  - Confusional state [Unknown]
  - Product dose omission [Unknown]
  - Disturbance in attention [Unknown]
  - Dyspnoea [Unknown]
